FAERS Safety Report 7849578-6 (Version None)
Quarter: 2011Q4

REPORT INFORMATION
  Report Type: 
  Country: None (occurrence: None)
  Receive Date: 20111026
  Receipt Date: 20111020
  Transmission Date: 20120403
  Serious: Yes (Hospitalization)
  Sender: FDA-Public Use
  Company Number: NL-AMGEN-NLDNI2011054277

PATIENT
  Sex: Female

DRUGS (6)
  1. ZOMETA [Suspect]
     Dosage: 0.4 MG, UNK
     Dates: start: 20110819, end: 20110930
  2. NEULASTA [Suspect]
     Indication: CHEMOTHERAPY
  3. DOXORUBICIN HCL [Suspect]
     Indication: BREAST CANCER
     Dosage: 90 MG, UNK
     Route: 042
     Dates: start: 20110819, end: 20110930
  4. CYCLOPHOSPHAMIDE [Suspect]
     Indication: BREAST CANCER
     Dosage: 900 MG, UNK
     Route: 042
     Dates: start: 20110819, end: 20110930
  5. EMEND                              /01627301/ [Concomitant]
     Dosage: UNK MG, UNK
     Dates: start: 20110930, end: 20111002
  6. DOCETAXEL [Suspect]
     Indication: BREAST CANCER
     Dosage: 130 MG, UNK
     Route: 042
     Dates: start: 20110819, end: 20110930

REACTIONS (1)
  - HYPOTENSION [None]
